FAERS Safety Report 17308341 (Version 1)
Quarter: 2020Q1

REPORT INFORMATION
  Report Type: Spontaneous
  Country: CN (occurrence: CN)
  Receive Date: 20200123
  Receipt Date: 20200123
  Transmission Date: 20200409
  Serious: Yes (Other)
  Sender: FDA-Public Use
  Company Number: NVSC2020CN014571

PATIENT
  Age: 60 Year
  Sex: Female

DRUGS (2)
  1. METHYLPREDNISOLONE. [Suspect]
     Active Substance: METHYLPREDNISOLONE
     Indication: IMMUNE THROMBOCYTOPENIC PURPURA
     Dosage: 12 MG, QD
     Route: 048
  2. DANAZOL. [Suspect]
     Active Substance: DANAZOL
     Indication: IMMUNE THROMBOCYTOPENIC PURPURA
     Dosage: 100 MG, QD
     Route: 065

REACTIONS (9)
  - Cough [Unknown]
  - Dyspnoea [Unknown]
  - Gastrointestinal haemorrhage [Unknown]
  - Product use in unapproved indication [Unknown]
  - Nocardiosis [Recovering/Resolving]
  - Immune thrombocytopenic purpura [Unknown]
  - Respiratory failure [Unknown]
  - Pyrexia [Recovered/Resolved]
  - Skin mass [Unknown]
